FAERS Safety Report 16652427 (Version 1)
Quarter: 2019Q3

REPORT INFORMATION
  Report Type: Spontaneous
  Country: US (occurrence: US)
  Receive Date: 20190731
  Receipt Date: 20190731
  Transmission Date: 20191004
  Serious: Yes (Other)
  Sender: FDA-Public Use
  Company Number: None

PATIENT
  Age: 46 Year
  Sex: Female
  Weight: 72 kg

DRUGS (1)
  1. ARMODAFINAL [Suspect]
     Active Substance: ARMODAFINIL
     Route: 048

REACTIONS (3)
  - Cognitive disorder [None]
  - Nervous system disorder [None]
  - Injury [None]

NARRATIVE: CASE EVENT DATE: 20180601
